FAERS Safety Report 7414896-2 (Version None)
Quarter: 2011Q2

REPORT INFORMATION
  Report Type: 
  Country: None (occurrence: None)
  Receive Date: 20110414
  Receipt Date: 20110408
  Transmission Date: 20111010
  Serious: Yes (Hospitalization, Other)
  Sender: FDA-Public Use
  Company Number: DE-SANOFI-AVENTIS-2011SA019762

PATIENT
  Age: 58 Year
  Sex: Female
  Weight: 73 kg

DRUGS (6)
  1. CYCLOPHOSPHAMIDE [Suspect]
     Indication: BREAST CANCER
     Route: 041
     Dates: start: 20110101, end: 20110101
  2. FORTECORTIN [Concomitant]
     Route: 042
     Dates: start: 20110310, end: 20110310
  3. ZOFRAN [Concomitant]
     Route: 042
     Dates: start: 20110310, end: 20110310
  4. HALDOL [Concomitant]
     Route: 048
     Dates: start: 20110310, end: 20110310
  5. DOCETAXEL [Suspect]
     Indication: BREAST CANCER
     Route: 041
     Dates: start: 20110101, end: 20110101
  6. ANTIEMETICS AND ANTINAUSEANTS [Concomitant]
     Route: 042
     Dates: start: 20110310, end: 20110310

REACTIONS (3)
  - MEMORY IMPAIRMENT [None]
  - NAUSEA [None]
  - AGGRESSION [None]
